FAERS Safety Report 9223469 (Version 1)
Quarter: 2013Q2

REPORT INFORMATION
  Report Type: Spontaneous
  Country: FR (occurrence: FR)
  Receive Date: 20130410
  Receipt Date: 20130410
  Transmission Date: 20140414
  Serious: Yes (Other)
  Sender: FDA-Public Use
  Company Number: FR-ASTRAZENECA-2013SE21612

PATIENT
  Age: 19699 Day
  Sex: Female

DRUGS (2)
  1. MERONEM [Suspect]
     Route: 042
  2. MERONEM [Suspect]
     Route: 037
     Dates: start: 20130313, end: 20130313

REACTIONS (3)
  - Hypertension [Recovered/Resolved]
  - Medication error [Unknown]
  - Incorrect route of drug administration [Unknown]
